FAERS Safety Report 8074324-3 (Version None)
Quarter: 2012Q1

REPORT INFORMATION
  Report Type: 
  Country: None (occurrence: None)
  Receive Date: 20120126
  Receipt Date: 20120113
  Transmission Date: 20120608
  Serious: Yes (Other)
  Sender: FDA-Public Use
  Company Number: DE-MYLANLABS-2012S1000928

PATIENT
  Sex: Male

DRUGS (5)
  1. LORAZEPAM [Suspect]
     Indication: PRODUCT USED FOR UNKNOWN INDICATION
     Dates: start: 20071018, end: 20071205
  2. MIRTAZAPINE [Suspect]
     Indication: PRODUCT USED FOR UNKNOWN INDICATION
     Dates: start: 20071018, end: 20071205
  3. ZYPREXA [Suspect]
     Indication: PRODUCT USED FOR UNKNOWN INDICATION
     Dates: start: 20071018, end: 20071205
  4. SOLIAN [Suspect]
     Indication: PRODUCT USED FOR UNKNOWN INDICATION
     Dates: start: 20071018, end: 20071205
  5. MIRTAZAPINE [Suspect]
     Indication: PRODUCT USED FOR UNKNOWN INDICATION
     Dates: start: 20071018, end: 20071205

REACTIONS (16)
  - SEDATION [None]
  - SLEEP DISORDER [None]
  - DISORIENTATION [None]
  - APATHY [None]
  - HYPERHIDROSIS [None]
  - HYPOAESTHESIA [None]
  - NAUSEA [None]
  - APHASIA [None]
  - DYSSTASIA [None]
  - WEIGHT INCREASED [None]
  - DISTURBANCE IN SEXUAL AROUSAL [None]
  - AGGRESSION [None]
  - GENERAL PHYSICAL HEALTH DETERIORATION [None]
  - MYALGIA [None]
  - RESTLESSNESS [None]
  - APPETITE DISORDER [None]
